FAERS Safety Report 4470823-1 (Version None)
Quarter: 2004Q4

REPORT INFORMATION
  Report Type: 
  Country: None (occurrence: None)
  Receive Date: 20041006
  Receipt Date: 20041006
  Transmission Date: 20050328
  Serious: Yes (Death)
  Sender: FDA-Public Use
  Company Number: None

PATIENT
  Age: 70 Year
  Sex: Male
  Weight: 134.7183 kg

DRUGS (1)
  1. ROCEPHIN [Suspect]
     Indication: PNEUMONIA
     Dosage: 1 GRAM  ONCCE DAILY INTRAVENOU
     Route: 042
     Dates: start: 20040827, end: 20040827

REACTIONS (5)
  - CARDIO-RESPIRATORY ARREST [None]
  - COMA [None]
  - ELECTROMECHANICAL DISSOCIATION [None]
  - HYPOTENSION [None]
  - SUPRAVENTRICULAR TACHYCARDIA [None]
